FAERS Safety Report 6845668-5 (Version None)
Quarter: 2010Q3

REPORT INFORMATION
  Report Type: 
  Country: None (occurrence: None)
  Receive Date: 20100715
  Receipt Date: 20070822
  Transmission Date: 20110219
  Serious: No
  Sender: FDA-Public Use
  Company Number: US-PFIZER INC-2007071287

PATIENT
  Sex: Female
  Weight: 47.272 kg

DRUGS (7)
  1. CHANTIX [Suspect]
     Indication: SMOKING CESSATION THERAPY
     Dates: start: 20070702, end: 20070821
  2. TOPROL-XL [Concomitant]
     Indication: HYPERTENSION
  3. PHENYTOIN SODIUM [Concomitant]
  4. OXYCODONE HCL [Concomitant]
  5. PERCOCET [Concomitant]
  6. DOXEPIN HCL [Concomitant]
  7. ANTIHYPERTENSIVES [Concomitant]

REACTIONS (1)
  - TOBACCO USER [None]
